FAERS Safety Report 5318066-3 (Version None)
Quarter: 2007Q1

REPORT INFORMATION
  Report Type: 
  Country: None (occurrence: None)
  Receive Date: 20070201
  Receipt Date: 20060112
  Transmission Date: 20070707
  Serious: Yes (Hospitalization)
  Sender: FDA-Public Use
  Company Number: MEDI-0004048

PATIENT
  Age: 70 Year
  Sex: Female
  Weight: 69.6725 kg

DRUGS (4)
  1. ETHYOL [Suspect]
     Indication: RADIOTHERAPY
     Dosage: 5 IN 1 WK, SUBCUTANEOUS
     Route: 058
     Dates: start: 20051114, end: 20051222
  2. RADIATION THERAPY [Concomitant]
  3. LISINOPRIL [Concomitant]
  4. CLARITIN [Concomitant]

REACTIONS (10)
  - CONSTIPATION [None]
  - DEHYDRATION [None]
  - FLUID INTAKE REDUCED [None]
  - INJECTION SITE RASH [None]
  - MALAISE [None]
  - NAUSEA [None]
  - PHARYNGOLARYNGEAL PAIN [None]
  - RASH [None]
  - VOMITING [None]
  - WEIGHT DECREASED [None]
